FAERS Safety Report 5949450-2 (Version None)
Quarter: 2008Q4

REPORT INFORMATION
  Report Type: 
  Country: None (occurrence: None)
  Receive Date: 20081112
  Receipt Date: 20081103
  Transmission Date: 20090506
  Serious: Yes (Other)
  Sender: FDA-Public Use
  Company Number: PHEH2008US09241

PATIENT
  Age: 79 Year

DRUGS (1)
  1. MIACALCIN [Suspect]

REACTIONS (2)
  - DRUG INEFFECTIVE [None]
  - SPINAL FRACTURE [None]
